FAERS Safety Report 9454953 (Version 3)
Quarter: 2013Q3

REPORT INFORMATION
  Report Type: Spontaneous
  Country: US (occurrence: US)
  Receive Date: 20130813
  Receipt Date: 20130911
  Transmission Date: 20140515
  Serious: Yes (Death)
  Sender: FDA-Public Use
  Company Number: US-ROCHE-1261055

PATIENT
  Sex: Male

DRUGS (22)
  1. XELODA [Suspect]
     Indication: NEOPLASM MALIGNANT
     Route: 048
     Dates: start: 20120910
  2. XELODA [Suspect]
     Dosage: 500 MG TABLET, TAKE 2.5 (1000 MG/M2) PO AS DIRECTED, INSTRUCTION: NEED ICD-9 CODE ON RX FOR CVS AND
     Route: 048
  3. OXALIPLATIN [Suspect]
     Indication: PRODUCT USED FOR UNKNOWN INDICATION
     Dosage: FREQUENCY X1
     Route: 042
     Dates: start: 20120905, end: 20120905
  4. EPIRUBICIN [Suspect]
     Indication: PRODUCT USED FOR UNKNOWN INDICATION
     Dosage: FREQUENCY X1
     Route: 042
     Dates: start: 20120905, end: 20120905
  5. LISINOPRIL [Concomitant]
     Route: 048
  6. ALPRAZOLAM [Concomitant]
     Route: 048
  7. ASPIR 81 [Concomitant]
     Route: 048
  8. BENZONATATE [Concomitant]
     Route: 048
  9. BUDESONIDE INHALATION [Concomitant]
     Route: 065
  10. COUMADIN [Concomitant]
     Route: 048
  11. CRESTOR [Concomitant]
     Route: 048
  12. CYMBALTA [Concomitant]
     Route: 048
  13. GLUCOSAMINE CHONDROITIN COMPLEX [Concomitant]
     Dosage: 500-400 MG CAPSULE TAKE 1 AS DIRECTED INSUTRUCTION:1500MG/1200MG
     Route: 065
  14. HYDROCODONE BITARTRATE/ACETAMINOPHEN [Concomitant]
     Dosage: 7.5-500/15 SOLUTION, ORAL TAKE 5 ML ORAL Q4H
     Route: 048
  15. IPRATROPIUM BROMIDE [Concomitant]
     Dosage: 0.2 MG/ML SOLUTION, NON ORAL TAKE 2.5 ML VIA NEBULIZER AS DIRECTED.
     Route: 065
  16. LEVITRA [Concomitant]
     Dosage: 10 MG TABLET TAKE 1 PER ORAL DAILY, INSTRUCTION:3 X A WEEK
     Route: 065
  17. METFORMIN HYDROCHLORIDE [Concomitant]
     Route: 048
  18. METOPROLOL SUCCINATE [Concomitant]
     Dosage: SUSTAINED RELEASE 24 HR
     Route: 065
  19. MULTAQ [Concomitant]
     Route: 048
  20. NIASPAN [Concomitant]
     Dosage: SUSTAINED RELEASE 24 HR
     Route: 048
  21. OMEGA 3 FATTY ACIDS [Concomitant]
     Route: 048
  22. VITAMIN D3 [Concomitant]
     Dosage: 1000 UNIT
     Route: 065

REACTIONS (2)
  - Oesophageal carcinoma [Fatal]
  - Metastases to liver [Fatal]
